FAERS Safety Report 5828725-1 (Version None)
Quarter: 2008Q3

REPORT INFORMATION
  Report Type: 
  Country: None (occurrence: None)
  Receive Date: 20080731
  Receipt Date: 20080722
  Transmission Date: 20090109
  Serious: Yes (Death)
  Sender: FDA-Public Use
  Company Number: US-ELI_LILLY_AND_COMPANY-US200807004614

PATIENT
  Age: 34 Year
  Sex: Female

DRUGS (1)
  1. XIGRIS [Suspect]
     Route: 042

REACTIONS (2)
  - GINGIVAL BLEEDING [None]
  - HAEMORRHAGE [None]
